FAERS Safety Report 25171179 (Version 2)
Quarter: 2025Q2

REPORT INFORMATION
  Report Type: Spontaneous
  Country: FI (occurrence: FI)
  Receive Date: 20250408
  Receipt Date: 20250414
  Transmission Date: 20250717
  Serious: Yes (Other)
  Sender: ABBVIE
  Company Number: FI-ABBVIE-6214047

PATIENT
  Age: 70 Year
  Sex: Female

DRUGS (3)
  1. OZURDEX [Suspect]
     Active Substance: DEXAMETHASONE
     Indication: Cystoid macular oedema
     Route: 031
     Dates: start: 20240402, end: 20250319
  2. OZURDEX [Suspect]
     Active Substance: DEXAMETHASONE
     Route: 031
     Dates: start: 2024, end: 2024
  3. OZURDEX [Suspect]
     Active Substance: DEXAMETHASONE
     Route: 031
     Dates: start: 202503, end: 202503

REACTIONS (5)
  - Cataract [Unknown]
  - Device dislocation [Recovered/Resolved]
  - Visual acuity reduced [Recovering/Resolving]
  - Epiretinal membrane [Unknown]
  - Cyst [Recovering/Resolving]

NARRATIVE: CASE EVENT DATE: 20250301
